FAERS Safety Report 5270316-8 (Version None)
Quarter: 2007Q1

REPORT INFORMATION
  Report Type: 
  Country: None (occurrence: None)
  Receive Date: 20070320
  Receipt Date: 20070308
  Transmission Date: 20070707
  Serious: Yes (Hospitalization, Other)
  Sender: FDA-Public Use
  Company Number: JP-PFIZER INC-2006087877

PATIENT
  Sex: Male
  Weight: 48.7 kg

DRUGS (14)
  1. SU-011,248 [Suspect]
     Indication: RENAL CELL CARCINOMA STAGE UNSPECIFIED
     Route: 048
  2. LANSOPRAZOLE [Concomitant]
     Route: 048
     Dates: start: 19970101, end: 20060716
  3. MISOPROSTOL [Concomitant]
     Route: 048
     Dates: start: 19970101, end: 20060716
  4. MOSAPRIDE CITRATE [Concomitant]
     Route: 048
     Dates: start: 19970101, end: 20060716
  5. ITOPRIDE HYDROCHLORIDE [Concomitant]
     Route: 048
     Dates: start: 19970101, end: 20060716
  6. TEPRENONE [Concomitant]
     Route: 048
     Dates: start: 19970101, end: 20060716
  7. SOLITA-T1 INJECTION [Concomitant]
     Dates: start: 20060716, end: 20060716
  8. VEEN D [Concomitant]
     Dates: start: 20060717, end: 20060720
  9. AMINOFLUID [Concomitant]
     Dates: start: 20060721, end: 20060728
  10. VALSARTAN [Concomitant]
     Dates: start: 20060708, end: 20060712
  11. VALSARTAN [Concomitant]
     Dates: start: 20060720, end: 20060802
  12. NIFEDIPINE [Concomitant]
     Route: 048
     Dates: start: 20060712, end: 20060716
  13. OMEPRAZOLE SODIUM [Concomitant]
     Dates: start: 20060716, end: 20060720
  14. CALCIUM LACTATE [Concomitant]
     Route: 048
     Dates: start: 20060710, end: 20060716

REACTIONS (3)
  - HYPOMAGNESAEMIA [None]
  - RENAL IMPAIRMENT [None]
  - VOMITING [None]
